FAERS Safety Report 6460586-2 (Version None)
Quarter: 2009Q4

REPORT INFORMATION
  Report Type: 
  Country: None (occurrence: None)
  Receive Date: 20091130
  Receipt Date: 20091118
  Transmission Date: 20100525
  Serious: Yes (Other)
  Sender: FDA-Public Use
  Company Number: JP-JNJFOC-20091007485

PATIENT
  Sex: Male
  Weight: 19 kg

DRUGS (10)
  1. CONCERTA [Suspect]
     Route: 048
     Dates: start: 20080308
  2. CONCERTA [Suspect]
     Route: 048
     Dates: start: 20080308
  3. CONCERTA [Suspect]
     Route: 048
     Dates: start: 20080308
  4. CONCERTA [Suspect]
     Route: 048
     Dates: start: 20080308
  5. CONCERTA [Suspect]
     Indication: ATTENTION DEFICIT/HYPERACTIVITY DISORDER
     Route: 048
     Dates: start: 20080308
  6. SERENACE [Suspect]
     Route: 048
  7. SERENACE [Suspect]
     Route: 048
  8. SERENACE [Suspect]
     Route: 048
  9. SERENACE [Suspect]
     Indication: ATTENTION DEFICIT/HYPERACTIVITY DISORDER
     Route: 048
  10. ATOMOXETINE HCL [Concomitant]
     Route: 048
     Dates: start: 20091010

REACTIONS (4)
  - AGGRESSION [None]
  - DRUG INEFFECTIVE [None]
  - DYSKINESIA [None]
  - SYDENHAM'S CHOREA [None]
